FAERS Safety Report 21768321 (Version 1)
Quarter: 2022Q4

REPORT INFORMATION
  Report Type: Spontaneous
  Country: US (occurrence: US)
  Receive Date: 20221222
  Receipt Date: 20221222
  Transmission Date: 20230112
  Serious: No
  Sender: FDA-Public Use
  Company Number: US-PERRIGO-22US013254

PATIENT
  Age: 89 Year
  Sex: Male
  Weight: 83.9 kg

DRUGS (5)
  1. NASONEX [Suspect]
     Active Substance: MOMETASONE FUROATE
     Indication: Rhinorrhoea
     Dosage: 100 MCG IN EACH NOSTRIL, QD
     Route: 045
     Dates: start: 20220919, end: 20220929
  2. ATORVASTATIN [Concomitant]
     Active Substance: ATORVASTATIN
     Indication: Blood cholesterol increased
     Dosage: UNK
     Route: 065
  3. ASPIRIN [Concomitant]
     Active Substance: ASPIRIN
     Indication: Thrombosis
     Dosage: BID
     Route: 065
     Dates: end: 20220930
  4. PROPRANOLOL [Concomitant]
     Active Substance: PROPRANOLOL HYDROCHLORIDE
     Indication: Tremor
     Dosage: UNK
     Route: 065
     Dates: start: 2012
  5. PRIMIDONE [Concomitant]
     Active Substance: PRIMIDONE
     Indication: Tremor
     Dosage: UNK
     Route: 065
     Dates: start: 2012

REACTIONS (2)
  - Epistaxis [Recovered/Resolved]
  - Off label use [Recovered/Resolved]

NARRATIVE: CASE EVENT DATE: 20220919
